FAERS Safety Report 19533513 (Version 1)
Quarter: 2021Q3

REPORT INFORMATION
  Report Type: Report from Study
  Country: CN (occurrence: CN)
  Receive Date: 20210713
  Receipt Date: 20210713
  Transmission Date: 20211014
  Serious: Yes (Death, Other)
  Sender: FDA-Public Use
  Company Number: CN-PFIZER INC-2021839258

PATIENT

DRUGS (6)
  1. METHYLPREDNISOLONE. [Suspect]
     Active Substance: METHYLPREDNISOLONE
     Dosage: 1 MG/KG, DAYS 8?14 CYCLIC
  2. METHYLPREDNISOLONE. [Suspect]
     Active Substance: METHYLPREDNISOLONE
     Dosage: 1 MG/KG, AND TAPERING ON DAYS 15?21 CYCLIC
  3. PEGASPARGASE [Suspect]
     Active Substance: PEGASPARGASE
     Indication: CHRONIC ACTIVE EPSTEIN-BARR VIRUS INFECTION
     Dosage: UNK, CYCLIC 2000 U/M2, ON DAY 5
  4. METHYLPREDNISOLONE. [Suspect]
     Active Substance: METHYLPREDNISOLONE
     Indication: CHRONIC ACTIVE EPSTEIN-BARR VIRUS INFECTION
     Dosage: 2 MG/KG, DAYS 1?7, CYCLIC
  5. ETOPOSIDE. [Suspect]
     Active Substance: ETOPOSIDE
     Indication: CHRONIC ACTIVE EPSTEIN-BARR VIRUS INFECTION
     Dosage: 100 MG/M2, DAYS 1, 8 AND 15, ONCE A WEEK CYCLIC
  6. LIPOSOMAL DOXORUBICIN HCL [Suspect]
     Active Substance: DOXORUBICIN HYDROCHLORIDE
     Indication: CHRONIC ACTIVE EPSTEIN-BARR VIRUS INFECTION
     Dosage: 25 MG/M2, ON DAY 1, CYCLIC

REACTIONS (3)
  - Gastrointestinal haemorrhage [Fatal]
  - Hepatic failure [Fatal]
  - Coagulopathy [Unknown]
